FAERS Safety Report 8459492-3 (Version None)
Quarter: 2012Q2

REPORT INFORMATION
  Report Type: 
  Country: None (occurrence: None)
  Receive Date: 20120515
  Receipt Date: 20120607
  Transmission Date: 20120825
  Serious: Yes (Hospitalization, Other)
  Sender: FDA-Public Use
  Company Number: 135237

PATIENT
  Age: 78 Year
  Sex: Female

DRUGS (1)
  1. METHOTREXATE [Suspect]
     Indication: PSORIASIS
     Dosage: 40MG

REACTIONS (11)
  - ANAL HAEMORRHAGE [None]
  - OROPHARYNGEAL PAIN [None]
  - FLUID INTAKE REDUCED [None]
  - STOMATITIS [None]
  - CHROMATURIA [None]
  - ABDOMINAL PAIN UPPER [None]
  - MUCOSAL INFLAMMATION [None]
  - ACCIDENTAL OVERDOSE [None]
  - DEHYDRATION [None]
  - LEUKOPENIA [None]
  - RENAL FAILURE [None]
